FAERS Safety Report 9227135 (Version 1)
Quarter: 2013Q2

REPORT INFORMATION
  Report Type: Spontaneous
  Country: US (occurrence: None)
  Receive Date: 20130411
  Receipt Date: 20130411
  Transmission Date: 20140414
  Serious: Yes (Death)
  Sender: FDA-Public Use
  Company Number: None

PATIENT
  Age: 86 Year
  Sex: Female
  Weight: 64 kg

DRUGS (1)
  1. RIVAROXABAN [Suspect]
     Dosage: 3 MONTHS AGO
     Route: 048

REACTIONS (4)
  - Gingival bleeding [None]
  - Gastrointestinal haemorrhage [None]
  - Haematemesis [None]
  - Melaena [None]
